FAERS Safety Report 12979249 (Version 1)
Quarter: 2016Q4

REPORT INFORMATION
  Report Type: Spontaneous
  Country: US (occurrence: US)
  Receive Date: 20161128
  Receipt Date: 20161128
  Transmission Date: 20170207
  Serious: Yes (Other)
  Sender: FDA-Public Use
  Company Number: US-JNJFOC-20161124920

PATIENT
  Age: 15 Year
  Sex: Male

DRUGS (3)
  1. DAYTRANA [Concomitant]
     Active Substance: METHYLPHENIDATE
     Route: 065
  2. INTUNIV [Concomitant]
     Active Substance: GUANFACINE HYDROCHLORIDE
     Route: 065
  3. CONCERTA [Suspect]
     Active Substance: METHYLPHENIDATE HYDROCHLORIDE
     Indication: PRODUCT USED FOR UNKNOWN INDICATION
     Route: 065

REACTIONS (3)
  - Homicidal ideation [Unknown]
  - Suicidal ideation [Unknown]
  - Drug dose omission [Unknown]
